FAERS Safety Report 24756670 (Version 1)
Quarter: 2024Q4

REPORT INFORMATION
  Report Type: Report from Study
  Country: CA (occurrence: CA)
  Receive Date: 20241220
  Receipt Date: 20241220
  Transmission Date: 20250114
  Serious: Yes (Other)
  Sender: CSL BEHRING
  Company Number: CA-BEH-2021130499

PATIENT
  Age: 12 Year
  Sex: Male
  Weight: 46 kg

DRUGS (4)
  1. HIZENTRA [Suspect]
     Active Substance: HUMAN IMMUNOGLOBULIN G
     Dosage: 6 GRAM Q5D, EVERY FIVE DAYS
     Route: 058
     Dates: start: 20200407
  2. HIZENTRA [Suspect]
     Active Substance: HUMAN IMMUNOGLOBULIN G
     Dosage: 6 G, QW
     Route: 065
     Dates: start: 20200407
  3. TYLENOL [Concomitant]
     Active Substance: ACETAMINOPHEN
  4. Reactine [Concomitant]

REACTIONS (4)
  - Immune-mediated encephalitis [Unknown]
  - Headache [Recovering/Resolving]
  - Nausea [Recovering/Resolving]
  - Vomiting [Recovering/Resolving]

NARRATIVE: CASE EVENT DATE: 20210201
